FAERS Safety Report 8269049-5 (Version None)
Quarter: 2012Q1

REPORT INFORMATION
  Report Type: 
  Country: None (occurrence: None)
  Receive Date: 20120327
  Receipt Date: 20091228
  Transmission Date: 20120608
  Serious: Yes (Other)
  Sender: FDA-Public Use
  Company Number: PHEH2009US13124

PATIENT
  Age: 71 Year
  Sex: Female

DRUGS (3)
  1. GLEEVEC [Suspect]
     Indication: CHRONIC MYELOID LEUKAEMIA
     Dosage: 400 MG, QD, ORAL
     Route: 048
     Dates: start: 20080912
  2. LEXAPRO [Suspect]
  3. CYMBALTA [Suspect]

REACTIONS (3)
  - DEPRESSION [None]
  - INSOMNIA [None]
  - CRYING [None]
